FAERS Safety Report 5869181-7 (Version None)
Quarter: 2008Q3

REPORT INFORMATION
  Report Type: 
  Country: None (occurrence: None)
  Receive Date: 20080903
  Receipt Date: 20080820
  Transmission Date: 20090109
  Serious: Yes (Hospitalization, Other)
  Sender: FDA-Public Use
  Company Number: GB-ELI_LILLY_AND_COMPANY-GB200801003748

PATIENT
  Age: 76 Year
  Sex: Male

DRUGS (12)
  1. BYETTA [Suspect]
     Dosage: 5 UG, 2/D
     Route: 065
     Dates: start: 20071029, end: 20071126
  2. INSULIN [Concomitant]
     Dosage: UNK, UNKNOWN
     Route: 065
  3. METFORMIN HCL [Concomitant]
     Dosage: UNK, UNKNOWN
     Route: 065
  4. GLICLAZIDE [Concomitant]
     Dosage: UNK, UNKNOWN
     Route: 065
  5. CLOPIDOGREL [Concomitant]
     Indication: ANGINA PECTORIS
     Dosage: UNK, UNKNOWN
     Route: 065
     Dates: end: 20071118
  6. ASPIRIN [Concomitant]
     Indication: ANGINA PECTORIS
     Dosage: UNK, UNKNOWN
     Route: 065
     Dates: start: 20071101, end: 20070101
  7. ASPIRIN [Concomitant]
     Dosage: UNK, UNKNOWN
     Route: 065
     Dates: start: 20071123
  8. ENOXAPARIN SODIUM [Concomitant]
     Indication: ANGINA PECTORIS
     Dosage: UNK, UNKNOWN
     Route: 065
     Dates: start: 20071101, end: 20071105
  9. BETA BLOCKING AGENTS [Concomitant]
     Indication: ANGINA PECTORIS
     Dosage: UNK, UNKNOWN
     Route: 065
  10. NICORANDIL [Concomitant]
     Dosage: UNK, UNKNOWN
     Route: 065
  11. RAMIPRIL [Concomitant]
     Dosage: UNK, UNKNOWN
     Route: 065
  12. VENOFER [Concomitant]
     Indication: IRON DEFICIENCY ANAEMIA
     Dosage: UNK, UNKNOWN
     Route: 065

REACTIONS (3)
  - ACUTE MYOCARDIAL INFARCTION [None]
  - EPISTAXIS [None]
  - RENAL IMPAIRMENT [None]
